FAERS Safety Report 8196477-9 (Version None)
Quarter: 2012Q1

REPORT INFORMATION
  Report Type: 
  Country: None (occurrence: None)
  Receive Date: 20120309
  Receipt Date: 20120306
  Transmission Date: 20120608
  Serious: Yes (Other)
  Sender: FDA-Public Use
  Company Number: JP-PFIZER INC-2012060167

PATIENT
  Sex: Male

DRUGS (1)
  1. EPLERENONE [Suspect]
     Indication: HYPERTENSION
     Dosage: 50 MG, DAILY

REACTIONS (2)
  - BLOOD PRESSURE INADEQUATELY CONTROLLED [None]
  - RENAL FAILURE ACUTE [None]
